FAERS Safety Report 6626668-7 (Version None)
Quarter: 2010Q1

REPORT INFORMATION
  Report Type: 
  Country: None (occurrence: None)
  Receive Date: 20100305
  Receipt Date: 20100219
  Transmission Date: 20100710
  Serious: Yes (Hospitalization)
  Sender: FDA-Public Use
  Company Number: 1000012134

PATIENT
  Sex: Male

DRUGS (2)
  1. ACAMPROSATE (ACAMPROSATE CALCIUM) (TABLETS) [Suspect]
     Indication: ALCOHOLISM
     Dosage: ORAL
     Route: 048
     Dates: start: 20100201
  2. ATARAX [Concomitant]

REACTIONS (1)
  - INTERSTITIAL LUNG DISEASE [None]
